FAERS Safety Report 5127544-1 (Version None)
Quarter: 2006Q4

REPORT INFORMATION
  Report Type: 
  Country: None (occurrence: None)
  Receive Date: 20061016
  Receipt Date: 20060506
  Transmission Date: 20070319
  Serious: Yes (Hospitalization)
  Sender: FDA-Public Use
  Company Number: US-BAYER-200611954BCC

PATIENT
  Age: 57 Year
  Sex: Male
  Weight: 104 kg

DRUGS (12)
  1. ALEVE [Suspect]
     Indication: OSTEOARTHRITIS
     Dosage: UNIT DOSE: 220 MG
     Route: 048
     Dates: start: 20020101, end: 20041101
  2. ALEVE [Suspect]
     Dosage: UNIT DOSE: 220 MG
     Route: 048
  3. A LOT OF PAIN MEDICATION [Suspect]
  4. NEXIUM [Concomitant]
  5. BENICAR [Concomitant]
  6. HYDROCODONE BITARTRATE [Concomitant]
  7. ASPIRIN [Concomitant]
  8. VIOXX [Concomitant]
  9. MULTIVITAMIN [Concomitant]
  10. FISH OIL [Concomitant]
  11. IRON [Concomitant]
  12. PRILOSEC [Concomitant]

REACTIONS (9)
  - ANASTOMOTIC ULCER HAEMORRHAGE [None]
  - DIZZINESS [None]
  - GASTRIC ULCER [None]
  - GASTROINTESTINAL HAEMORRHAGE [None]
  - GASTROINTESTINAL MUCOSAL NECROSIS [None]
  - JEJUNITIS [None]
  - LOSS OF CONSCIOUSNESS [None]
  - OCCULT BLOOD POSITIVE [None]
  - POSTOPERATIVE INFECTION [None]
